FAERS Safety Report 9062406 (Version 1)
Quarter: 2013Q1

REPORT INFORMATION
  Report Type: Report from Study
  Country: JP (occurrence: JP)
  Receive Date: 20130213
  Receipt Date: 20130213
  Transmission Date: 20140127
  Serious: Yes (Other)
  Sender: FDA-Public Use
  Company Number: JP-GLAXOSMITHKLINE-B0866987A

PATIENT
  Age: 54 None
  Sex: Female
  Weight: 45 kg

DRUGS (6)
  1. TYKERB [Suspect]
     Indication: BREAST CANCER
     Route: 048
     Dates: start: 20100712, end: 20101109
  2. XELODA [Suspect]
     Route: 048
     Dates: start: 20100712, end: 20101012
  3. LETROZOLE [Concomitant]
     Indication: BREAST CANCER
     Route: 048
  4. TENORMIN [Concomitant]
     Indication: HYPERTENSION
     Route: 048
  5. LIPITOR [Concomitant]
     Indication: HYPERLIPIDAEMIA
     Route: 048
  6. ALFAROL [Concomitant]
     Indication: METASTASES TO BONE
     Route: 048

REACTIONS (3)
  - Platelet count decreased [Recovered/Resolved]
  - White blood cell count decreased [Recovered/Resolved]
  - Diarrhoea [Unknown]
